FAERS Safety Report 24790949 (Version 3)
Quarter: 2025Q1

REPORT INFORMATION
  Report Type: Spontaneous
  Country: US (occurrence: US)
  Receive Date: 20241230
  Receipt Date: 20250306
  Transmission Date: 20250409
  Serious: No
  Sender: BAUSCH AND LOMB
  Company Number: US-BAUSCHBL-2024BNL039401

PATIENT
  Age: 55 Year
  Sex: Female
  Weight: 64.86 kg

DRUGS (1)
  1. MIEBO [Suspect]
     Active Substance: PERFLUOROHEXYLOCTANE
     Indication: Dry eye
     Dosage: TWICE PER DAY PER EYE
     Route: 047

REACTIONS (5)
  - Dry eye [Unknown]
  - Product use issue [Unknown]
  - Product use complaint [Unknown]
  - Wrong dose [Unknown]
  - Inappropriate schedule of product administration [Unknown]

NARRATIVE: CASE EVENT DATE: 20240101
